FAERS Safety Report 12464320 (Version 1)
Quarter: 2016Q2

REPORT INFORMATION
  Report Type: Spontaneous
  Country: BR (occurrence: BR)
  Receive Date: 20160614
  Receipt Date: 20160614
  Transmission Date: 20160815
  Serious: Yes (Other)
  Sender: FDA-Public Use
  Company Number: BR-PFIZER INC-2016291092

PATIENT
  Age: 60 Year
  Sex: Female
  Weight: 64 kg

DRUGS (5)
  1. XALATAN [Suspect]
     Active Substance: LATANOPROST
     Indication: BLINDNESS
     Dosage: 3 UG (ONE DROP IN BOTH EYES), UNK
     Route: 047
     Dates: start: 20160420
  2. GLIFAGE XR [Concomitant]
     Active Substance: METFORMIN HYDROCHLORIDE
     Indication: DIABETES MELLITUS
     Dosage: UNK, 1X/DAY AT NIGHT
     Route: 048
     Dates: start: 2010
  3. EUTHYROX [Concomitant]
     Active Substance: LEVOTHYROXINE SODIUM
     Indication: HYPOTHYROIDISM
     Dosage: 1 DF, 1X/DAY IN THE MORNING
     Route: 048
     Dates: start: 1996
  4. COSOPT [Concomitant]
     Active Substance: DORZOLAMIDE HYDROCHLORIDE\TIMOLOL MALEATE
     Indication: BLINDNESS
     Dosage: 2 GTT (ONE DROP IN EACH EYE), 1X/DAY AT NIGHT
     Route: 047
     Dates: start: 20160420
  5. ALPHAGAN P [Concomitant]
     Active Substance: BRIMONIDINE TARTRATE
     Indication: BLINDNESS
     Dosage: 2 GTT (ONE DROP IN EACH EYE), 1X/DAY
     Route: 047
     Dates: start: 20160420

REACTIONS (2)
  - Visual acuity reduced [Unknown]
  - Product use issue [Not Recovered/Not Resolved]

NARRATIVE: CASE EVENT DATE: 20160420
